FAERS Safety Report 4340274-9 (Version None)
Quarter: 2004Q2

REPORT INFORMATION
  Report Type: 
  Country: None (occurrence: None)
  Receive Date: 20040412
  Receipt Date: 20040401
  Transmission Date: 20050107
  Serious: Yes (Hospitalization)
  Sender: FDA-Public Use
  Company Number: IT-JNJFOC-20040400689

PATIENT
  Age: 26 Year
  Sex: Female

DRUGS (3)
  1. REMICADE [Suspect]
     Indication: POLYARTHRITIS
     Dosage: 200 MG, 1 IN 1 CYCLICAL , INTRAVENOUS
     Route: 042
     Dates: start: 20010717, end: 20010717
  2. REMICADE [Suspect]
     Indication: RHEUMATOID ARTHRITIS
     Dosage: 200 MG, 1 IN 1 CYCLICAL , INTRAVENOUS
     Route: 042
     Dates: start: 20010717, end: 20010717
  3. PREDNISONE [Concomitant]

REACTIONS (1)
  - ANAPHYLACTIC SHOCK [None]
